FAERS Safety Report 13079343 (Version 1)
Quarter: 2017Q1

REPORT INFORMATION
  Report Type: Spontaneous
  Country: US (occurrence: US)
  Receive Date: 20170103
  Receipt Date: 20170103
  Transmission Date: 20170428
  Serious: Yes (Death, Hospitalization)
  Sender: FDA-Public Use
  Company Number: US-ASTRAZENECA-2016SF38018

PATIENT
  Age: 66 Year
  Sex: Female

DRUGS (4)
  1. CLONAZEPAM. [Suspect]
     Active Substance: CLONAZEPAM
     Route: 048
  2. METOPROLOL(EXTENDED RELEASE) [Suspect]
     Active Substance: METOPROLOL SUCCINATE
     Route: 048
  3. FENTANYL. [Suspect]
     Active Substance: FENTANYL
     Route: 048
  4. MORPHINE [Suspect]
     Active Substance: MORPHINE
     Route: 048

REACTIONS (3)
  - Toxicity to various agents [Fatal]
  - Completed suicide [Fatal]
  - Exposure via ingestion [None]
